FAERS Safety Report 19397912 (Version 2)
Quarter: 2021Q3

REPORT INFORMATION
  Report Type: Spontaneous
  Country: US (occurrence: US)
  Receive Date: 20210610
  Receipt Date: 20210702
  Transmission Date: 20211014
  Serious: No
  Sender: FDA-Public Use
  Company Number: NVSC2021US130875

PATIENT
  Age: 67 Year
  Sex: Male

DRUGS (1)
  1. VOLTAREN [Suspect]
     Active Substance: DICLOFENAC SODIUM
     Indication: ARTHRITIS
     Dosage: UNK
     Route: 065

REACTIONS (6)
  - Swelling [Recovering/Resolving]
  - Pain [Recovering/Resolving]
  - Inappropriate schedule of product administration [Unknown]
  - Pruritus [Recovering/Resolving]
  - Blister [Recovering/Resolving]
  - Skin disorder [Recovering/Resolving]
